FAERS Safety Report 7936287-8 (Version None)
Quarter: 2011Q4

REPORT INFORMATION
  Report Type: 
  Country: None (occurrence: None)
  Receive Date: 20111123
  Receipt Date: 20111118
  Transmission Date: 20120403
  Serious: No
  Sender: FDA-Public Use
  Company Number: US-B.I. PHARMACEUTICALS,INC./RIDGEFIELD-2011-BP-22004BP

PATIENT
  Sex: Female

DRUGS (8)
  1. VYTORIN [Concomitant]
  2. ASMANEX TWISTHALER [Concomitant]
     Indication: ASTHMA
  3. AMLODIPINE [Concomitant]
  4. BENAZEPRIL HYDROCHLORIDE [Concomitant]
  5. METOPROLOL TARTRATE [Concomitant]
  6. HYDROCHLOROT [Concomitant]
  7. ASPIRIN [Concomitant]
  8. SPIRIVA [Suspect]
     Indication: ASTHMA
     Dosage: 18 MCG
     Route: 055
     Dates: start: 20010101

REACTIONS (1)
  - VOCAL CORD DISORDER [None]
